FAERS Safety Report 20375359 (Version 1)
Quarter: 2022Q1

REPORT INFORMATION
  Report Type: Spontaneous
  Country: US (occurrence: None)
  Receive Date: 20220124
  Receipt Date: 20220124
  Transmission Date: 20220423
  Serious: Yes (Other)
  Sender: FDA-Public Use
  Company Number: None

PATIENT
  Age: 56 Year
  Sex: Female

DRUGS (1)
  1. BAMLANIVIMAB\ETESEVIMAB [Suspect]
     Active Substance: BAMLANIVIMAB\ETESEVIMAB
     Indication: COVID-19

REACTIONS (5)
  - Back pain [None]
  - Hypoaesthesia oral [None]
  - Hypoaesthesia [None]
  - Hyperhidrosis [None]
  - Body temperature decreased [None]

NARRATIVE: CASE EVENT DATE: 20220124
